FAERS Safety Report 21216565 (Version 1)
Quarter: 2022Q3

REPORT INFORMATION
  Report Type: Spontaneous
  Country: US (occurrence: US)
  Receive Date: 20220816
  Receipt Date: 20220816
  Transmission Date: 20221026
  Serious: No
  Sender: FDA-Public Use
  Company Number: US-PAIPHARMA-2021-US-018736

PATIENT
  Age: 50 Year
  Sex: Female
  Weight: 36.29 kg

DRUGS (1)
  1. LACTULOSE [Suspect]
     Active Substance: LACTULOSE
     Indication: Ammonia increased
     Dosage: 15 ML ONCE PER DAY
     Route: 048
     Dates: start: 20210527, end: 20210626

REACTIONS (2)
  - Platelet count decreased [Not Recovered/Not Resolved]
  - Ammonia increased [Not Recovered/Not Resolved]

NARRATIVE: CASE EVENT DATE: 20210726
